FAERS Safety Report 9782410 (Version 4)
Quarter: 2014Q1

REPORT INFORMATION
  Report Type: Report from Study
  Country: CA (occurrence: CA)
  Receive Date: 20131226
  Receipt Date: 20140319
  Transmission Date: 20141002
  Serious: Yes (Other)
  Sender: FDA-Public Use
  Company Number: PHHY2013CA150269

PATIENT
  Age: 57 Year
  Sex: Male

DRUGS (2)
  1. SANDOSTATIN LAR [Suspect]
     Indication: CARCINOID TUMOUR
     Dosage: 30 MG, EVERY 4 WEEKS
     Route: 030
     Dates: start: 20131121
  2. SANDOSTATIN (OCTREOTIDE ACETATE) [Suspect]
     Indication: CARCINOID TUMOUR
     Dosage: 150 UG, BID
     Route: 058

REACTIONS (8)
  - Cachexia [Unknown]
  - Pallor [Unknown]
  - Weight decreased [Unknown]
  - Ascites [Unknown]
  - Flushing [Unknown]
  - Malaise [Not Recovered/Not Resolved]
  - Diarrhoea [Not Recovered/Not Resolved]
  - Nausea [Unknown]
